FAERS Safety Report 17743746 (Version 1)
Quarter: 2020Q2

REPORT INFORMATION
  Report Type: Spontaneous
  Country: CZ (occurrence: CZ)
  Receive Date: 20200504
  Receipt Date: 20200504
  Transmission Date: 20200714
  Serious: Yes (Death, Hospitalization)
  Sender: FDA-Public Use
  Company Number: CZ-NAPPMUNDI-GBR-2020-0076502

PATIENT
  Age: 77 Year
  Sex: Male
  Weight: 51 kg

DRUGS (4)
  1. COLISTIN [Suspect]
     Active Substance: COLISTIN
     Indication: LUNG DISORDER
     Dosage: UNK
     Route: 065
     Dates: end: 201904
  2. ERDOSTEINE [Suspect]
     Active Substance: ERDOSTEINE
     Indication: PRODUCT USED FOR UNKNOWN INDICATION
     Dosage: UNK
     Route: 065
  3. NON-PMN THEOPHYLLINE [Suspect]
     Active Substance: THEOPHYLLINE ANHYDROUS
     Indication: PRODUCT USED FOR UNKNOWN INDICATION
     Dosage: UNK
     Route: 065
  4. FLUCONAZOLE. [Suspect]
     Active Substance: FLUCONAZOLE
     Indication: PRODUCT USED FOR UNKNOWN INDICATION
     Dosage: UNK
     Route: 065

REACTIONS (1)
  - Chronic obstructive pulmonary disease [Fatal]
